FAERS Safety Report 4881031-4 (Version None)
Quarter: 2005Q4

REPORT INFORMATION
  Report Type: 
  Country: None (occurrence: None)
  Receive Date: 20051223
  Receipt Date: 20050926
  Transmission Date: 20060501
  Serious: Yes (Disabling)
  Sender: FDA-Public Use
  Company Number: 04P-163-0284096

PATIENT
  Age: 67 Year
  Sex: Male
  Weight: 82.1011 kg

DRUGS (16)
  1. HUMIRA [Suspect]
     Indication: RHEUMATOID ARTHRITIS
     Dosage: 40 MG, 1 IN 2 WK, SUBCUTANEOUS
     Route: 058
     Dates: start: 20030801, end: 20030901
  2. HUMIRA [Suspect]
     Indication: RHEUMATOID ARTHRITIS
     Dosage: 40 MG, 1 IN 2 WK, SUBCUTANEOUS
     Route: 058
     Dates: start: 20030901, end: 20040601
  3. MULTIVITAMIN [Concomitant]
  4. FISH OIL [Concomitant]
  5. RAMIPRIL [Concomitant]
  6. PREDNISONE [Concomitant]
  7. ERGOCALCIFEROL [Concomitant]
  8. GLUCOSAMINE [Concomitant]
  9. FOLIC ACID [Concomitant]
  10. VITAMIN B12 AND FOLIC ACID [Concomitant]
  11. MECLIZINE [Concomitant]
  12. ACETYLSALICYLIC ACID SRT [Concomitant]
  13. LATANOPROST [Concomitant]
  14. POTASSIUM [Concomitant]
  15. ALPHA-LIPOIC ACID [Concomitant]
  16. METHOTREXATETE [Concomitant]

REACTIONS (12)
  - DELAYED SLEEP PHASE [None]
  - ERECTILE DYSFUNCTION [None]
  - FAECAL INCONTINENCE [None]
  - FALL [None]
  - FATIGUE [None]
  - INCREASED TENDENCY TO BRUISE [None]
  - MULTIPLE SCLEROSIS [None]
  - MUSCLE ATROPHY [None]
  - MUSCULOSKELETAL STIFFNESS [None]
  - SPINAL OSTEOARTHRITIS [None]
  - URINARY INCONTINENCE [None]
  - VISUAL ACUITY REDUCED [None]
